FAERS Safety Report 5935267-1 (Version None)
Quarter: 2008Q4

REPORT INFORMATION
  Report Type: 
  Country: None (occurrence: None)
  Receive Date: 20081030
  Receipt Date: 20081020
  Transmission Date: 20090506
  Serious: Yes (Other)
  Sender: FDA-Public Use
  Company Number: JP-SANOFI-SYNTHELABO-A01200813087

PATIENT
  Age: 85 Year
  Sex: Female

DRUGS (9)
  1. CRESTOR [Concomitant]
     Indication: DRUG USE FOR UNKNOWN INDICATION
     Route: 065
  2. ASPIRIN [Concomitant]
     Indication: DRUG USE FOR UNKNOWN INDICATION
     Route: 065
  3. NORVASC [Concomitant]
     Indication: DRUG USE FOR UNKNOWN INDICATION
     Route: 065
  4. ACTOS [Suspect]
     Indication: DRUG USE FOR UNKNOWN INDICATION
     Route: 065
     Dates: end: 20081001
  5. ACTOS [Suspect]
     Route: 065
     Dates: start: 20081001
  6. PLAVIX [Suspect]
     Indication: PERCUTANEOUS CORONARY INTERVENTION
     Route: 048
     Dates: end: 20081001
  7. PLAVIX [Suspect]
     Indication: ANGINA PECTORIS
     Route: 048
     Dates: end: 20081001
  8. PLAVIX [Suspect]
     Route: 048
     Dates: start: 20081001
  9. PLAVIX [Suspect]
     Route: 048
     Dates: start: 20081001

REACTIONS (2)
  - BLOOD SODIUM DECREASED [None]
  - PURPURA [None]
